FAERS Safety Report 4278348-3 (Version None)
Quarter: 2004Q1

REPORT INFORMATION
  Report Type: 
  Country: None (occurrence: None)
  Receive Date: 20040123
  Receipt Date: 20010910
  Transmission Date: 20041129
  Serious: Yes (Hospitalization)
  Sender: FDA-Public Use
  Company Number: SE-ROCHE-267931

PATIENT
  Age: 51 Year
  Sex: Male
  Weight: 78.5 kg

DRUGS (12)
  1. DACLIZUMAB [Suspect]
     Route: 042
     Dates: start: 20010813, end: 20010813
  2. DACLIZUMAB [Suspect]
     Dosage: X4 DOSES
     Route: 042
     Dates: start: 20010827, end: 20011009
  3. MYCOPHENOLATE MOFETIL [Suspect]
     Route: 048
     Dates: start: 20010813, end: 20011125
  4. MYCOPHENOLATE MOFETIL [Suspect]
     Dosage: LOWERED DOSAGE.
     Route: 048
     Dates: start: 20011205
  5. LANSOPRAZOLE [Concomitant]
     Dates: start: 20010815
  6. FUROSEMIDE [Concomitant]
     Dates: start: 20010814
  7. PLENDIL [Concomitant]
     Dates: start: 20010816
  8. CYMEVENE [Concomitant]
     Dates: start: 20010817
  9. PREDNISOLONE [Concomitant]
     Dates: start: 20010813
  10. NEORAL [Concomitant]
     Dates: start: 20010815
  11. TROMBYL [Concomitant]
     Dates: start: 20010824
  12. TRIMETOPRIM-SULFA [Concomitant]
     Dates: start: 20011116

REACTIONS (3)
  - BLOOD CREATININE INCREASED [None]
  - CYTOMEGALOVIRUS INFECTION [None]
  - HAEMATOMA [None]
